FAERS Safety Report 6297572-1 (Version None)
Quarter: 2009Q3

REPORT INFORMATION
  Report Type: 
  Country: None (occurrence: None)
  Receive Date: 20090805
  Receipt Date: 20090731
  Transmission Date: 20100115
  Serious: Yes (Hospitalization)
  Sender: FDA-Public Use
  Company Number: IT-BRISTOL-MYERS SQUIBB COMPANY-14723340

PATIENT
  Sex: Female

DRUGS (1)
  1. ORENCIA [Suspect]
     Indication: RHEUMATOID ARTHRITIS
     Dosage: 2ND INF ON 30JUL09
     Route: 042

REACTIONS (3)
  - ACUTE MYOCARDIAL INFARCTION [None]
  - HYPERTENSION [None]
  - INCORRECT DRUG ADMINISTRATION DURATION [None]
